FAERS Safety Report 9083770 (Version 1)
Quarter: 2013Q1

REPORT INFORMATION
  Report Type: Report from Study
  Country: US (occurrence: US)
  Receive Date: 20130131
  Receipt Date: 20130131
  Transmission Date: 20140127
  Serious: No
  Sender: FDA-Public Use
  Company Number: US-ABBOTT-12P-163-0991784-00

PATIENT
  Age: 24 Year
  Sex: Female

DRUGS (3)
  1. HUMIRA [Suspect]
     Indication: PSORIASIS
     Dates: start: 20120927
  2. GENERIC LIPITOR [Concomitant]
     Indication: BLOOD CHOLESTEROL INCREASED
  3. GENERIC ORAL CONTRACEPTIVE [Concomitant]
     Indication: PRODUCT USED FOR UNKNOWN INDICATION
     Dosage: PILL

REACTIONS (6)
  - Malaise [Unknown]
  - Oropharyngeal pain [Unknown]
  - Ear congestion [Unknown]
  - Lymphadenopathy [Unknown]
  - Unevaluable event [Unknown]
  - Injection site pain [Not Recovered/Not Resolved]
